FAERS Safety Report 6583770-6 (Version None)
Quarter: 2010Q1

REPORT INFORMATION
  Report Type: 
  Country: None (occurrence: None)
  Receive Date: 20100213
  Receipt Date: 20100213
  Transmission Date: 20100710
  Serious: Yes (Hospitalization)
  Sender: FDA-Public Use
  Company Number: None

PATIENT
  Sex: Male

DRUGS (4)
  1. AVASTIN [Suspect]
     Indication: NON-SMALL CELL LUNG CANCER
     Dosage: 1.009MG EVERY 21 DAYS IV
     Route: 042
     Dates: start: 20090715, end: 20100125
  2. GABAPENTIN [Concomitant]
  3. METHADONE [Concomitant]
  4. HYDROMORPHONE HCL [Concomitant]

REACTIONS (2)
  - DRUG INEFFECTIVE [None]
  - PAIN [None]
